FAERS Safety Report 4330942-7 (Version None)
Quarter: 2004Q1

REPORT INFORMATION
  Report Type: 
  Country: None (occurrence: None)
  Receive Date: 20040330
  Receipt Date: 20040316
  Transmission Date: 20041129
  Serious: Yes (Hospitalization, Other)
  Sender: FDA-Public Use
  Company Number: PT-SHR-03-001270

PATIENT
  Age: 34 Year
  Sex: Male
  Weight: 72 kg

DRUGS (6)
  1. FLUDARA [Suspect]
     Indication: BONE MARROW TRANSPLANT
     Dosage: 30 MG/M2, INTRAVENOUS
     Route: 042
     Dates: start: 20030107, end: 20030108
  2. LEPICORTINOLO ST [Concomitant]
  3. MELPHALAN (MELPHALAN) [Concomitant]
  4. ACYCLOVIR [Concomitant]
  5. CORTICOSTEROIDS [Concomitant]
  6. NSAID'S [Concomitant]

REACTIONS (4)
  - NEPHROPATHY TOXIC [None]
  - POLYURIA [None]
  - RENAL FAILURE ACUTE [None]
  - STEM CELL TRANSPLANT [None]
